FAERS Safety Report 14260825 (Version 10)
Quarter: 2018Q3

REPORT INFORMATION
  Report Type: Spontaneous
  Country: FR (occurrence: FR)
  Receive Date: 20171207
  Receipt Date: 20180807
  Transmission Date: 20181010
  Serious: Yes (Hospitalization, Other)
  Sender: FDA-Public Use
  Company Number: FR-SA-2017SA240391

PATIENT
  Age: 34 Year
  Sex: Female

DRUGS (14)
  1. ROPIVACAINE [Suspect]
     Active Substance: ROPIVACAINE
     Indication: ANAESTHESIA
     Dosage: 15 ML,UNK
     Route: 065
  2. NEFOPAM [Suspect]
     Active Substance: NEFOPAM
     Indication: ANALGESIC THERAPY
     Dosage: 40 MG,QID
     Route: 048
  3. PARACETAMOL [Suspect]
     Active Substance: ACETAMINOPHEN
     Dosage: 1 G,QID
     Route: 048
  4. ROPIVACAINE [Suspect]
     Active Substance: ROPIVACAINE
     Indication: EPIDURAL ANALGESIA
     Dosage: 20 ML,TOTAL
     Route: 008
  5. LIDOCAINE. [Suspect]
     Active Substance: LIDOCAINE
     Indication: EPIDURAL ANALGESIA
     Dosage: 300 MG,TOTAL
     Route: 008
  6. PARACETAMOL [Suspect]
     Active Substance: ACETAMINOPHEN
     Indication: ANALGESIC THERAPY
     Dosage: 1 G,QID
     Route: 048
  7. MORPHINE HYDROCHLORIDE [Suspect]
     Active Substance: MORPHINE HYDROCHLORIDE
     Indication: ANALGESIC THERAPY
     Dosage: 2 MG,QID
     Route: 008
  8. LIDOCAINE. [Suspect]
     Active Substance: LIDOCAINE
     Dosage: 15 ML,UNK
     Route: 008
  9. ACETYLSALICYLIC ACID [Suspect]
     Active Substance: ASPIRIN
     Dosage: UNK UNK,UNK
     Route: 065
  10. ENOXAPARIN SODIUM. [Suspect]
     Active Substance: ENOXAPARIN SODIUM
     Indication: THROMBOSIS PROPHYLAXIS
     Dosage: 40 MG,QD
     Route: 058
  11. KETOPROFEN. [Suspect]
     Active Substance: KETOPROFEN
     Indication: ANALGESIC THERAPY
     Dosage: 50 MG,QID
     Route: 048
  12. KETOPROFEN. [Suspect]
     Active Substance: KETOPROFEN
     Dosage: 200 MG,QD
     Route: 048
  13. EPINEPHRINE. [Suspect]
     Active Substance: EPINEPHRINE
     Indication: ANAESTHESIA
     Dosage: 15 ML,TOTAL
     Route: 008
  14. SUFENTANIL [Suspect]
     Active Substance: SUFENTANIL
     Indication: EPIDURAL ANALGESIA
     Dosage: 5 UG,TOTAL
     Route: 008

REACTIONS (12)
  - Epistaxis [Unknown]
  - Nervous system disorder [Recovering/Resolving]
  - Live birth [Unknown]
  - Foetal heart rate abnormal [Recovering/Resolving]
  - Peripheral nerve injury [Recovered/Resolved]
  - Neuropathy peripheral [Recovered/Resolved]
  - Epidural analgesia [Unknown]
  - Product use issue [Unknown]
  - Gait disturbance [Recovered/Resolved]
  - Paraesthesia [Recovered/Resolved]
  - Spinal epidural haemorrhage [Recovered/Resolved]
  - Maternal exposure during pregnancy [Unknown]
